FAERS Safety Report 17955817 (Version 1)
Quarter: 2020Q2

REPORT INFORMATION
  Report Type: Spontaneous
  Country: US (occurrence: US)
  Receive Date: 20200626
  Receipt Date: 20200626
  Transmission Date: 20200714
  Serious: Yes (Other)
  Sender: FDA-Public Use
  Company Number: None

PATIENT
  Age: 46 Year
  Sex: Female
  Weight: 82.35 kg

DRUGS (2)
  1. MULTIVITAMIN [Concomitant]
     Active Substance: VITAMINS
  2. AMLODIPINE [Suspect]
     Active Substance: AMLODIPINE BESYLATE
     Indication: HYPERTENSION
     Route: 048
     Dates: start: 20191221

REACTIONS (7)
  - Chest pain [None]
  - Palpitations [None]
  - Anxiety [None]
  - Abnormal dreams [None]
  - Back pain [None]
  - Insomnia [None]
  - Middle insomnia [None]

NARRATIVE: CASE EVENT DATE: 20200423
